FAERS Safety Report 16755623 (Version 4)
Quarter: 2020Q1

REPORT INFORMATION
  Report Type: Spontaneous
  Country: US (occurrence: US)
  Receive Date: 20190829
  Receipt Date: 20200306
  Transmission Date: 20200409
  Serious: Yes (Death)
  Sender: FDA-Public Use
  Company Number: US-CATALYST PHARMACEUTICALS, INC-2019CAT00351

PATIENT
  Age: 83 Year
  Sex: Female
  Weight: 54.42 kg

DRUGS (1)
  1. FIRDAPSE [Suspect]
     Active Substance: AMIFAMPRIDINE
     Indication: MYASTHENIC SYNDROME
     Dosage: UNK, 3X/DAY
     Route: 050
     Dates: start: 2019, end: 201908

REACTIONS (2)
  - B-cell lymphoma [Fatal]
  - Myasthenic syndrome [Fatal]

NARRATIVE: CASE EVENT DATE: 201908
